FAERS Safety Report 7042916-6 (Version None)
Quarter: 2010Q4

REPORT INFORMATION
  Report Type: 
  Country: None (occurrence: None)
  Receive Date: 20101013
  Receipt Date: 20091103
  Transmission Date: 20110411
  Serious: No
  Sender: FDA-Public Use
  Company Number: US-ASTRAZENECA-2009SE24204

PATIENT
  Age: 85 Year
  Sex: Male

DRUGS (2)
  1. SYMBICORT [Suspect]
     Indication: ASTHMA
     Dosage: 80/4.5, 1 PUFF IN MORNING AND 1 PUFF IN EVENING.
     Route: 055
     Dates: start: 20090801, end: 20091103
  2. SYMBICORT [Suspect]
     Dosage: 80/4.5, 2 PUFF IN MORNING AND 2 PUFF IN EVENING.
     Route: 055
     Dates: start: 20091103

REACTIONS (1)
  - DYSPNOEA [None]
